FAERS Safety Report 7045336-3 (Version None)
Quarter: 2010Q4

REPORT INFORMATION
  Report Type: 
  Country: None (occurrence: None)
  Receive Date: 20101014
  Receipt Date: 20100819
  Transmission Date: 20110411
  Serious: No
  Sender: FDA-Public Use
  Company Number: US-ALLERGAN-1010776US

PATIENT
  Age: 66 Year
  Sex: Female

DRUGS (2)
  1. LATISSE [Suspect]
     Indication: GROWTH OF EYELASHES
     Dosage: 1 GTT, QHS
     Route: 061
     Dates: start: 20100101, end: 20100806
  2. BAUCH + LOMB DRY EYE RELIEF [Concomitant]
     Indication: DRY EYE
     Dosage: UNK

REACTIONS (4)
  - DRY EYE [None]
  - FOREIGN BODY SENSATION IN EYES [None]
  - OCULAR HYPERAEMIA [None]
  - VISION BLURRED [None]
